FAERS Safety Report 8358310-1 (Version None)
Quarter: 2012Q2

REPORT INFORMATION
  Report Type: 
  Country: None (occurrence: None)
  Receive Date: 20120514
  Receipt Date: 20110415
  Transmission Date: 20120825
  Serious: No
  Sender: FDA-Public Use
  Company Number: US-ALEXION-A201100546

PATIENT
  Sex: Female

DRUGS (2)
  1. SOLIRIS [Suspect]
     Indication: PAROXYSMAL NOCTURNAL HAEMOGLOBINURIA
     Dosage: 900 MG Q2W
     Route: 042
     Dates: start: 20100120
  2. FOLIC ACID [Concomitant]
     Dosage: UNK

REACTIONS (6)
  - ANAEMIA [None]
  - FATIGUE [None]
  - PYREXIA [None]
  - INFLUENZA [None]
  - NAUSEA [None]
  - DIARRHOEA [None]
